FAERS Safety Report 24283227 (Version 1)
Quarter: 2024Q3

REPORT INFORMATION
  Report Type: Spontaneous
  Country: US (occurrence: US)
  Receive Date: 20240904
  Receipt Date: 20240904
  Transmission Date: 20241017
  Serious: No
  Sender: EISAI
  Company Number: US-Eisai-EC-2024-171721

PATIENT
  Age: 73 Year
  Sex: Female
  Weight: 59.2 kg

DRUGS (10)
  1. LEQEMBI [Suspect]
     Active Substance: LECANEMAB-IRMB
     Indication: Dementia Alzheimer^s type
     Dosage: DOSE UNKNOWN
     Route: 042
     Dates: start: 20240521
  2. BIOTIN [Concomitant]
     Active Substance: BIOTIN
  3. CALCIUM ACETATE [Concomitant]
     Active Substance: CALCIUM ACETATE
  4. CHOLECALCIFEROL [Concomitant]
     Active Substance: CHOLECALCIFEROL
  5. CLINDAMYCIN [Concomitant]
     Active Substance: CLINDAMYCIN
  6. ARICEPT [Concomitant]
     Active Substance: DONEPEZIL HYDROCHLORIDE
  7. FEMARA [Concomitant]
     Active Substance: LETROZOLE
  8. ZESTRIL [Concomitant]
     Active Substance: LISINOPRIL
  9. NASONEX [Concomitant]
     Active Substance: MOMETASONE FUROATE
  10. MOTRIN [Concomitant]
     Active Substance: IBUPROFEN

REACTIONS (2)
  - Infusion related reaction [Recovered/Resolved]
  - COVID-19 [Unknown]

NARRATIVE: CASE EVENT DATE: 20240521
